FAERS Safety Report 11759239 (Version 1)
Quarter: 2015Q4

REPORT INFORMATION
  Report Type: Spontaneous
  Country: US (occurrence: US)
  Receive Date: 20151120
  Receipt Date: 20151120
  Transmission Date: 20160304
  Serious: No
  Sender: FDA-Public Use
  Company Number: US-JNJFOC-20151005925

PATIENT
  Age: 50 Year
  Sex: Female
  Weight: 78.47 kg

DRUGS (4)
  1. WOMENS ROGAINE UNSCENTED [Suspect]
     Active Substance: MINOXIDIL
     Route: 061
  2. MULTIVITAMINS [Concomitant]
     Active Substance: VITAMINS
     Indication: NUTRITIONAL SUPPLEMENTATION
     Dosage: FOUR YEARS
     Route: 065
  3. ASHWAGANDHA [Concomitant]
     Active Substance: HERBALS
     Indication: STRESS
     Dosage: 2 MONTHS
     Route: 065
  4. WOMENS ROGAINE UNSCENTED [Suspect]
     Active Substance: MINOXIDIL
     Indication: ALOPECIA
     Dosage: HALF CAPFUL
     Route: 061
     Dates: start: 20150904, end: 20151006

REACTIONS (1)
  - Pruritus [Not Recovered/Not Resolved]
